FAERS Safety Report 10005808 (Version 1)
Quarter: 2014Q1

REPORT INFORMATION
  Report Type: Report from Study
  Country: MX (occurrence: MX)
  Receive Date: 20140313
  Receipt Date: 20140313
  Transmission Date: 20141002
  Serious: Yes (Other)
  Sender: FDA-Public Use
  Company Number: MX-ROCHE-1362140

PATIENT
  Age: 63 Year
  Sex: Male
  Weight: 68 kg

DRUGS (3)
  1. XELODA [Suspect]
     Indication: GASTRIC CANCER
     Route: 065
  2. OXALIPLATIN [Concomitant]
     Indication: GASTRIC CANCER
  3. DOCETAXEL [Concomitant]

REACTIONS (1)
  - Disease progression [Unknown]
